FAERS Safety Report 18748444 (Version 1)
Quarter: 2021Q1

REPORT INFORMATION
  Report Type: Spontaneous
  Country: BR (occurrence: BR)
  Receive Date: 20210116
  Receipt Date: 20210116
  Transmission Date: 20210419
  Serious: Yes (Life-Threatening, Hospitalization, Other)
  Sender: FDA-Public Use
  Company Number: BR-MACLEODS PHARMACEUTICALS US LTD-BR-MP-000028

PATIENT

DRUGS (3)
  1. FLUNARIZINE [Suspect]
     Active Substance: FLUNARIZINE
     Indication: PRODUCT USED FOR UNKNOWN INDICATION
     Dosage: 250 MILLIGRAM, SINGLE, 25 OF FLUNARIZINE 10 MG
     Route: 065
  2. AMLODIPINE [Suspect]
     Active Substance: AMLODIPINE BESYLATE
     Indication: PRODUCT USED FOR UNKNOWN INDICATION
     Dosage: 150 MILLIGRAM, SINGLE, 30 TABLETS OF 5MG
     Route: 065
  3. HYDROCHLOROTHIAZIDE. [Suspect]
     Active Substance: HYDROCHLOROTHIAZIDE
     Indication: PRODUCT USED FOR UNKNOWN INDICATION
     Dosage: 300 MILLIGRAM, SINGLE, 12 HYDROCHLOROTHIAZIDE 25 MG
     Route: 065

REACTIONS (13)
  - Anuria [Recovered/Resolved]
  - Suicide attempt [Unknown]
  - Intentional overdose [Unknown]
  - Headache [Unknown]
  - Dizziness [Unknown]
  - Paraesthesia [Unknown]
  - Hyperglycaemia [Unknown]
  - Toxicity to various agents [Unknown]
  - Hypotension [Recovered/Resolved]
  - Vertigo [Unknown]
  - Pulmonary oedema [Recovered/Resolved]
  - Poor peripheral circulation [Recovered/Resolved]
  - Arrhythmia [Recovered/Resolved]
